FAERS Safety Report 4734279-3 (Version None)
Quarter: 2005Q3

REPORT INFORMATION
  Report Type: 
  Country: None (occurrence: None)
  Receive Date: 20050721
  Receipt Date: 20050418
  Transmission Date: 20060218
  Serious: No
  Sender: FDA-Public Use
  Company Number: 2005SP000217

PATIENT
  Age: 62 Year
  Sex: Female
  Weight: 68.4932 kg

DRUGS (3)
  1. LUNESTA [Suspect]
     Dosage: 2-3 MG;HS;ORAL
     Route: 048
     Dates: start: 20050412, end: 20050412
  2. LUNESTA [Suspect]
     Dosage: 2-3 MG;HS;ORAL
     Route: 048
     Dates: start: 20050413, end: 20050416
  3. LUNESTA [Suspect]
     Dosage: 2-3 MG;HS;ORAL
     Route: 048
     Dates: start: 20050601

REACTIONS (2)
  - ABNORMAL DREAMS [None]
  - PARADOXICAL DRUG REACTION [None]
